FAERS Safety Report 4391954-0 (Version None)
Quarter: 2004Q3

REPORT INFORMATION
  Report Type: 
  Country: None (occurrence: None)
  Receive Date: 20040701
  Receipt Date: 20040611
  Transmission Date: 20050211
  Serious: Yes (Hospitalization, Other)
  Sender: FDA-Public Use
  Company Number: USA040465522

PATIENT
  Age: 74 Year
  Sex: Female
  Weight: 75 kg

DRUGS (13)
  1. FORTEO [Suspect]
     Indication: OSTEOPOROSIS
     Dosage: 20 UG/1 DAY
     Dates: start: 20030203, end: 20031123
  2. HUMULIN N [Suspect]
     Dosage: 30 U DAY
  3. HUMULIN R [Suspect]
     Dosage: 24 U DAY
  4. EVISTA [Suspect]
     Dosage: 60 MG/1 DAY
  5. PREDNISONE [Concomitant]
  6. SYNTHROID [Concomitant]
  7. CALCIUM [Concomitant]
  8. PRAVACHOL [Concomitant]
  9. FOSAMAX [Concomitant]
  10. LOTENSIN HCT [Concomitant]
  11. VIOXX [Concomitant]
  12. PEPCID [Concomitant]
  13. ASPIRIN [Concomitant]

REACTIONS (14)
  - ABDOMINAL PAIN [None]
  - BLOOD CHOLESTEROL INCREASED [None]
  - BODY HEIGHT DECREASED [None]
  - CHONDROSARCOMA [None]
  - COLONIC PSEUDO-OBSTRUCTION [None]
  - DYSPHAGIA [None]
  - HIP FRACTURE [None]
  - HYPERTENSION [None]
  - OSTEOPOROSIS [None]
  - PHARMACEUTICAL PRODUCT COMPLAINT [None]
  - POLYMYALGIA RHEUMATICA [None]
  - SPINAL FRACTURE [None]
  - WALKING AID USER [None]
  - WOUND DEHISCENCE [None]
